FAERS Safety Report 8760265 (Version 4)
Quarter: 2018Q3

REPORT INFORMATION
  Report Type: Spontaneous
  Country: GB (occurrence: GB)
  Receive Date: 20120830
  Receipt Date: 20180924
  Transmission Date: 20181010
  Serious: Yes (Hospitalization, Other)
  Sender: FDA-Public Use
  Company Number: GB-009507513-1208GBR007841

PATIENT
  Age: 36 Year
  Sex: Female

DRUGS (3)
  1. CARBAMAZEPINE. [Interacting]
     Active Substance: CARBAMAZEPINE
     Indication: SEIZURE
     Dosage: UNK
  2. IMPLANON [Suspect]
     Active Substance: ETONOGESTREL
     Indication: CONTRACEPTION
     Dosage: UNK
     Route: 059
  3. IMPLANON [Interacting]
     Active Substance: ETONOGESTREL
     Indication: EPILEPSY
     Dosage: UNK

REACTIONS (8)
  - Drug interaction [Recovered/Resolved]
  - Ruptured ectopic pregnancy [Recovered/Resolved]
  - Abortion [Recovered/Resolved]
  - Vaginal haemorrhage [Recovering/Resolving]
  - Drug ineffective [Recovered/Resolved]
  - Thrombosis [Recovering/Resolving]
  - Ectopic pregnancy [Recovered/Resolved]
  - Abdominal pain lower [Recovering/Resolving]
